FAERS Safety Report 10192856 (Version 2)
Quarter: 2014Q2

REPORT INFORMATION
  Report Type: Report from Study
  Country: CA (occurrence: CA)
  Receive Date: 20140523
  Receipt Date: 20140523
  Transmission Date: 20141212
  Serious: Yes (Other)
  Sender: FDA-Public Use
  Company Number: CA-ABBVIE-12P-028-1028511-00

PATIENT
  Sex: Female
  Weight: 73.09 kg

DRUGS (3)
  1. HUMIRA [Suspect]
     Indication: RHEUMATOID ARTHRITIS
     Route: 058
     Dates: start: 20090306, end: 20121218
  2. HUMIRA [Suspect]
     Route: 058
     Dates: start: 2013, end: 2013
  3. METHOTREXATE [Concomitant]
     Indication: RHEUMATOID ARTHRITIS

REACTIONS (3)
  - Arthropathy [Not Recovered/Not Resolved]
  - Knee deformity [Recovered/Resolved]
  - Arthritis [Unknown]
